FAERS Safety Report 24428050 (Version 1)
Quarter: 2024Q4

REPORT INFORMATION
  Report Type: Spontaneous
  Country: US (occurrence: US)
  Receive Date: 20241011
  Receipt Date: 20241011
  Transmission Date: 20250115
  Serious: Yes (Death, Life-Threatening, Hospitalization, Other)
  Sender: HIKMA
  Company Number: US-HIKMA PHARMACEUTICALS-US-H14001-24-09429

PATIENT
  Age: 66 Year
  Sex: Female

DRUGS (2)
  1. CYTOXAN [Suspect]
     Active Substance: CYCLOPHOSPHAMIDE
     Indication: Breast cancer
     Dosage: UNK
     Route: 065
  2. DOXORUBICIN [Suspect]
     Active Substance: DOXORUBICIN
     Indication: Breast cancer
     Dosage: UNKNOWN
     Route: 065

REACTIONS (5)
  - Hypotension [Fatal]
  - Atrial fibrillation [Fatal]
  - Lactic acidosis [Fatal]
  - Acute respiratory failure [Fatal]
  - Cardiomyopathy [Fatal]
